FAERS Safety Report 9152963 (Version 1)
Quarter: 2013Q1

REPORT INFORMATION
  Report Type: Spontaneous
  Country: US (occurrence: US)
  Receive Date: 20130211
  Receipt Date: 20130211
  Transmission Date: 20140127
  Serious: Yes (Other)
  Sender: FDA-Public Use
  Company Number: US-RB-049337-13

PATIENT
  Age: 80 Year
  Sex: Male

DRUGS (1)
  1. DELSYM ADULT GRAPE [Suspect]
     Indication: PRODUCT USED FOR UNKNOWN INDICATION
     Dosage: TWO OR THREE 10ML DOSES
     Route: 048
     Dates: start: 20130123

REACTIONS (2)
  - Eyelid oedema [Recovered/Resolved]
  - Eye discharge [Recovered/Resolved]
